FAERS Safety Report 10583049 (Version 3)
Quarter: 2015Q1

REPORT INFORMATION
  Report Type: Report from Study
  Country: BR (occurrence: BR)
  Receive Date: 20141114
  Receipt Date: 20150113
  Transmission Date: 20150720
  Serious: Yes (Death, Hospitalization, Other)
  Sender: FDA-Public Use
  Company Number: BR-ROCHE-1460641

PATIENT
  Sex: Male
  Weight: 64 kg

DRUGS (2)
  1. ACTEMRA [Suspect]
     Active Substance: TOCILIZUMAB
     Indication: RHEUMATOID ARTHRITIS
     Route: 042
     Dates: start: 20140804, end: 20140804
  2. INSULIN [Concomitant]
     Active Substance: INSULIN NOS
     Indication: DIABETES MELLITUS

REACTIONS (9)
  - Infection [Unknown]
  - Pain [Unknown]
  - General physical health deterioration [Unknown]
  - Asthenia [Unknown]
  - Paralysis [Unknown]
  - Pneumonia [Unknown]
  - Death [Fatal]
  - Drug dose omission [Unknown]
  - Immunodeficiency [Unknown]
